FAERS Safety Report 15632386 (Version 1)
Quarter: 2018Q4

REPORT INFORMATION
  Report Type: Spontaneous
  Country: US (occurrence: US)
  Receive Date: 20181119
  Receipt Date: 20181119
  Transmission Date: 20190205
  Serious: No
  Sender: FDA-Public Use
  Company Number: US-BEH-2018096895

PATIENT
  Age: 26 Year
  Sex: Female

DRUGS (2)
  1. HIZENTRA [Suspect]
     Active Substance: HUMAN IMMUNOGLOBULIN G
     Indication: IMMUNODEFICIENCY COMMON VARIABLE
     Dosage: 10 G, QW
     Route: 058
     Dates: start: 201809
  2. MULTIVITAMIN                       /00097801/ [Concomitant]
     Active Substance: VITAMINS
     Route: 065

REACTIONS (5)
  - Nasal congestion [Recovered/Resolved]
  - Administration site swelling [Recovered/Resolved]
  - Migraine [Recovered/Resolved]
  - Pain in extremity [Recovered/Resolved]
  - Nausea [Recovered/Resolved]

NARRATIVE: CASE EVENT DATE: 20181112
